FAERS Safety Report 17426936 (Version 1)
Quarter: 2020Q1

REPORT INFORMATION
  Report Type: Spontaneous
  Country: DE (occurrence: DE)
  Receive Date: 20200217
  Receipt Date: 20200217
  Transmission Date: 20200409
  Serious: Yes (Other)
  Sender: FDA-Public Use
  Company Number: DE-COVIS PHARMA B.V.-2020COV00073

PATIENT
  Sex: Female

DRUGS (13)
  1. ALVESCO [Suspect]
     Active Substance: CICLESONIDE
     Dosage: 160 ?G
  2. VALSARTAN. [Concomitant]
     Active Substance: VALSARTAN
  3. SELENIUM [Concomitant]
     Active Substance: SELENIUM
  4. ATORVASTATIN [Concomitant]
     Active Substance: ATORVASTATIN
  5. DAXAS [Concomitant]
     Active Substance: ROFLUMILAST
     Dosage: 500 MG
  6. VITAMIN D (ERGOCALCIFEROL) [Concomitant]
     Active Substance: ERGOCALCIFEROL
  7. GABAPENTIN. [Concomitant]
     Active Substance: GABAPENTIN
  8. CANDESARTAN. [Concomitant]
     Active Substance: CANDESARTAN
  9. L-THYROXIN [Concomitant]
     Active Substance: LEVOTHYROXINE SODIUM
     Dosage: 100 ?G
  10. SALBUTAMOL [Concomitant]
     Active Substance: ALBUTEROL
  11. ULTIBRO [Concomitant]
     Active Substance: GLYCOPYRRONIUM\INDACATEROL
  12. DAXAS [Concomitant]
     Active Substance: ROFLUMILAST
     Dosage: 250 MG, 2X/MONTH
     Dates: start: 201908
  13. ACETYLSALICYLIC ACID [Concomitant]
     Active Substance: ASPIRIN

REACTIONS (14)
  - Visual impairment [Unknown]
  - Post procedural complication [Unknown]
  - Insomnia [Unknown]
  - Decreased appetite [Unknown]
  - Dizziness [Unknown]
  - Gamma-glutamyltransferase increased [Unknown]
  - Diarrhoea [Unknown]
  - Weight decreased [Unknown]
  - Headache [Unknown]
  - Pulmonary arterial hypertension [Unknown]
  - Palpitations [Unknown]
  - Anxiety [Unknown]
  - Unevaluable event [Unknown]
  - Nausea [Unknown]
